FAERS Safety Report 20512699 (Version 2)
Quarter: 2022Q1

REPORT INFORMATION
  Report Type: Spontaneous
  Country: US (occurrence: US)
  Receive Date: 20220224
  Receipt Date: 20220308
  Transmission Date: 20220423
  Serious: Yes (Life-Threatening, Other)
  Sender: FDA-Public Use
  Company Number: US-PFIZER INC-202200295154

PATIENT
  Age: 43 Year
  Sex: Female

DRUGS (5)
  1. VANCOMYCIN HYDROCHLORIDE [Suspect]
     Active Substance: VANCOMYCIN HYDROCHLORIDE
     Indication: Sepsis
     Dosage: UNK
  2. CEFEPIME HYDROCHLORIDE [Suspect]
     Active Substance: CEFEPIME HYDROCHLORIDE
     Indication: Sepsis
     Dosage: UNK
  3. METRONIDAZOLE [Concomitant]
     Active Substance: METRONIDAZOLE
     Indication: Sepsis
     Dosage: UNK
  4. MEROPENEM [Concomitant]
     Active Substance: MEROPENEM
     Dosage: UNK
  5. MICAFUNGIN [Concomitant]
     Active Substance: MICAFUNGIN
     Dosage: UNK

REACTIONS (3)
  - Drug reaction with eosinophilia and systemic symptoms [Recovered/Resolved]
  - Shock [Recovered/Resolved]
  - Renal failure [Unknown]
